FAERS Safety Report 8157391-8 (Version None)
Quarter: 2012Q1

REPORT INFORMATION
  Report Type: 
  Country: None (occurrence: None)
  Receive Date: 20120103
  Receipt Date: 20110921
  Transmission Date: 20120608
  Serious: No
  Sender: FDA-Public Use
  Company Number: AE-2011-002007

PATIENT
  Age: 46 Year
  Sex: Male
  Weight: 81.6475 kg

DRUGS (7)
  1. INCIVEK [Suspect]
     Dosage: 2250 MG (750 MG, 3 IN 1 D), ORAL
     Route: 048
     Dates: start: 20110916
  2. OXYCONTIN [Concomitant]
  3. DILAUDID [Concomitant]
  4. ABILIFY [Concomitant]
  5. PEGINTERFERON (PEGINTERFERON ALFA-2A) [Concomitant]
  6. RIBAVIRIN [Concomitant]
  7. DEXILANTI (ANTACIDS, OTHER COMBINATIONS) [Concomitant]

REACTIONS (12)
  - MUSCLE SPASMS [None]
  - NAUSEA [None]
  - VISION BLURRED [None]
  - HEADACHE [None]
  - FATIGUE [None]
  - INSOMNIA [None]
  - VOMITING [None]
  - OEDEMA PERIPHERAL [None]
  - CONFUSIONAL STATE [None]
  - PAIN IN EXTREMITY [None]
  - PLATELET COUNT DECREASED [None]
  - PRURITUS [None]
